FAERS Safety Report 6003274-9 (Version None)
Quarter: 2008Q4

REPORT INFORMATION
  Report Type: 
  Country: None (occurrence: None)
  Receive Date: 20081216
  Receipt Date: 20081203
  Transmission Date: 20090506
  Serious: Yes (Life-Threatening, Other)
  Sender: FDA-Public Use
  Company Number: DE-BAYER-DE-2006-034875

PATIENT
  Age: 80 Year
  Sex: Female
  Weight: 71 kg

DRUGS (16)
  1. MAGNEVIST [Suspect]
     Indication: NUCLEAR MAGNETIC RESONANCE IMAGING
     Dosage: UNIT DOSE: 14 ML
     Dates: start: 20061103, end: 20061103
  2. DIGIMERCK MINOR [Concomitant]
     Indication: DRUG USE FOR UNKNOWN INDICATION
     Dosage: UNIT DOSE: 0.07 MG
  3. CALCIUM ACETATE [Concomitant]
     Indication: DRUG USE FOR UNKNOWN INDICATION
     Dosage: UNIT DOSE: 500 MG
  4. UNAT [Concomitant]
     Indication: DRUG USE FOR UNKNOWN INDICATION
     Dosage: UNIT DOSE: 50 MG
  5. VITARENAL [Concomitant]
  6. INSULIN ACTRAPHAN HUMAN [Concomitant]
     Indication: DIABETES MELLITUS
  7. INSUMAN COMB [Concomitant]
     Indication: DIABETES MELLITUS
     Dosage: UNIT DOSE: 42 IU
  8. SODIUM BICARBONATE [Concomitant]
     Indication: DRUG USE FOR UNKNOWN INDICATION
  9. LORZAAR [Concomitant]
     Dosage: UNIT DOSE: 50 MG
  10. DILATREND [Concomitant]
     Indication: DRUG USE FOR UNKNOWN INDICATION
     Dosage: UNIT DOSE: 3.125 MG
  11. EUTHYROX [Concomitant]
     Dosage: UNIT DOSE: 100 ?G
  12. NEXIUM [Concomitant]
     Indication: DRUG USE FOR UNKNOWN INDICATION
     Dosage: UNIT DOSE: 40 MG
  13. MARCUMAR [Concomitant]
     Indication: DRUG USE FOR UNKNOWN INDICATION
  14. FERRLECIT /GFR/ [Concomitant]
  15. DEKRISTOL [Concomitant]
     Indication: DRUG USE FOR UNKNOWN INDICATION
  16. ARANESP [Concomitant]
     Indication: DRUG USE FOR UNKNOWN INDICATION

REACTIONS (8)
  - ACUTE PHASE REACTION [None]
  - C-REACTIVE PROTEIN INCREASED [None]
  - CHILLS [None]
  - GENERAL PHYSICAL HEALTH DETERIORATION [None]
  - LEUKOCYTOSIS [None]
  - LYMPHOPENIA [None]
  - NAUSEA [None]
  - PYREXIA [None]
